FAERS Safety Report 25882149 (Version 1)
Quarter: 2025Q4

REPORT INFORMATION
  Report Type: Spontaneous
  Country: NZ (occurrence: NZ)
  Receive Date: 20251006
  Receipt Date: 20251006
  Transmission Date: 20260118
  Serious: Yes (Other)
  Sender: ABBVIE
  Company Number: NZ-LUNDBECK-DKLU4019714

PATIENT
  Age: 17 Year

DRUGS (1)
  1. CITALOPRAM [Suspect]
     Active Substance: CITALOPRAM
     Indication: Product used for unknown indication
     Route: 065

REACTIONS (30)
  - Sleep paralysis [Unknown]
  - Libido decreased [Unknown]
  - Misophonia [Unknown]
  - Breast swelling [Unknown]
  - Emotional poverty [Unknown]
  - Sleep disorder [Unknown]
  - Product administered to patient of inappropriate age [Unknown]
  - Nervous system disorder [Unknown]
  - Social problem [Unknown]
  - Bladder pain [Unknown]
  - Deafness [Unknown]
  - Sexual dysfunction [Unknown]
  - Suicidal ideation [Unknown]
  - Menstrual headache [Unknown]
  - Apathy [Unknown]
  - Anhedonia [Unknown]
  - Alcohol intolerance [Unknown]
  - Pollakiuria [Unknown]
  - Photophobia [Unknown]
  - Abnormal dreams [Unknown]
  - Disturbance in sexual arousal [Unknown]
  - Irritable bowel syndrome [Unknown]
  - Hallucination [Unknown]
  - Cognitive disorder [Unknown]
  - Hypoaesthesia [Unknown]
  - Dysphagia [Unknown]
  - Upper-airway cough syndrome [Unknown]
  - Dissociation [Unknown]
  - Disturbance in attention [Unknown]
  - Aphasia [Unknown]
